FAERS Safety Report 21329229 (Version 5)
Quarter: 2022Q3

REPORT INFORMATION
  Report Type: Report from Study
  Country: RU (occurrence: RU)
  Receive Date: 20220913
  Receipt Date: 20220930
  Transmission Date: 20221027
  Serious: Yes (Hospitalization)
  Sender: FDA-Public Use
  Company Number: RU-NOVARTISPH-NVSC2022RU203488

PATIENT
  Age: 14 Year
  Sex: Male
  Weight: 47.6 kg

DRUGS (33)
  1. SECUKINUMAB [Suspect]
     Active Substance: SECUKINUMAB
     Indication: Psoriasis
     Dosage: UNK
     Route: 058
     Dates: start: 20181107
  2. URSODIOL [Concomitant]
     Active Substance: URSODIOL
     Indication: Hepatic fibrosis
     Dosage: UNK
     Route: 065
     Dates: start: 20220914
  3. ONDANSETRON [Concomitant]
     Active Substance: ONDANSETRON
     Indication: Vomiting
     Dosage: UNK
     Route: 065
     Dates: start: 20220916, end: 20220916
  4. ALUMINUM PHOSPHATE [Concomitant]
     Active Substance: ALUMINUM PHOSPHATE
     Indication: Gastritis
     Dosage: UNK
     Route: 065
     Dates: start: 20220914
  5. SODIUM CHLORIDE [Concomitant]
     Active Substance: SODIUM CHLORIDE
     Indication: Pyrexia
     Dosage: UNK
     Route: 065
     Dates: start: 20220912, end: 20220921
  6. SODIUM CHLORIDE [Concomitant]
     Active Substance: SODIUM CHLORIDE
     Indication: Viral infection
  7. HEXETIDINE [Concomitant]
     Active Substance: HEXETIDINE
     Indication: Pyrexia
     Dosage: UNK
     Route: 065
     Dates: start: 20220918, end: 20220921
  8. HEXETIDINE [Concomitant]
     Active Substance: HEXETIDINE
     Indication: Viral infection
  9. KETOTIFEN [Concomitant]
     Active Substance: KETOTIFEN
     Indication: Pyrexia
     Dosage: UNK
     Route: 065
     Dates: start: 20220917, end: 20220921
  10. KETOTIFEN [Concomitant]
     Active Substance: KETOTIFEN
     Indication: Viral infection
  11. IBUPROFEN [Concomitant]
     Active Substance: IBUPROFEN
     Indication: Pyrexia
     Dosage: UNK
     Route: 065
     Dates: start: 20220909, end: 20220909
  12. IBUPROFEN [Concomitant]
     Active Substance: IBUPROFEN
     Indication: Viral infection
  13. ESOMEPRAZOLE [Concomitant]
     Active Substance: ESOMEPRAZOLE
     Indication: Gastritis
     Dosage: UNK
     Route: 065
     Dates: start: 20220914
  14. TRIMEBUTINE [Concomitant]
     Active Substance: TRIMEBUTINE
     Indication: Chronic gastritis
     Dosage: UNK
     Route: 065
     Dates: start: 20220822, end: 202209
  15. URSODIOL [Concomitant]
     Active Substance: URSODIOL
     Indication: Chronic gastritis
     Dosage: UNK
     Route: 065
     Dates: start: 20220825, end: 202209
  16. URSODIOL [Concomitant]
     Active Substance: URSODIOL
     Indication: Prophylaxis
  17. CEFTRIAXONE [Concomitant]
     Active Substance: CEFTRIAXONE
     Indication: Abdominal pain
     Dosage: UNK
     Route: 065
     Dates: start: 202103, end: 202104
  18. ALMAGEL [Concomitant]
     Indication: Abdominal pain
     Dosage: UNK
     Route: 065
     Dates: start: 2021
  19. METOCLOPRAMIDE HYDROCHLORIDE [Concomitant]
     Active Substance: METOCLOPRAMIDE HYDROCHLORIDE
     Indication: Abdominal pain
     Dosage: UNK
     Route: 065
     Dates: start: 202103, end: 202104
  20. AMBROXOL [Concomitant]
     Active Substance: AMBROXOL
     Indication: Abdominal pain
     Dosage: UNK
     Route: 065
     Dates: start: 202103, end: 202104
  21. INGAVIRIN [Concomitant]
     Active Substance: INGAVIRIN
     Indication: Abdominal pain
     Dosage: UNK
     Route: 065
     Dates: start: 202103, end: 202104
  22. FLUCONAZOLE [Concomitant]
     Active Substance: FLUCONAZOLE
     Indication: Abdominal pain
     Dosage: UNK
     Route: 065
     Dates: start: 202205
  23. FLUCONAZOLE [Concomitant]
     Active Substance: FLUCONAZOLE
     Indication: Chronic gastritis
     Dosage: UNK
     Route: 065
     Dates: start: 202208
  24. OMEPRAZOLE [Concomitant]
     Active Substance: OMEPRAZOLE
     Indication: Abdominal pain
     Dosage: UNK
     Route: 065
     Dates: start: 202205
  25. PIMAFUCINE [Concomitant]
     Indication: Abdominal pain
     Dosage: UNK
     Route: 065
     Dates: start: 202205
  26. ALUMINUM PHOSPHATE [Concomitant]
     Active Substance: ALUMINUM PHOSPHATE
     Indication: Abdominal pain
     Dosage: UNK
     Route: 065
     Dates: start: 202205
  27. MAALOX ANTACID [Concomitant]
     Active Substance: ALUMINUM HYDROXIDE\DIMETHICONE\MAGNESIUM HYDROXIDE
     Indication: Abdominal pain
     Dosage: UNK
     Route: 065
     Dates: start: 202205
  28. NEXIUM [Concomitant]
     Active Substance: ESOMEPRAZOLE MAGNESIUM
     Indication: Chronic gastritis
     Dosage: UNK
     Route: 065
     Dates: start: 202208
  29. TRIMEDAT [Concomitant]
     Indication: Chronic gastritis
     Dosage: UNK
     Route: 065
     Dates: start: 202208
  30. VITAMIN D [Concomitant]
     Active Substance: VITAMIN D NOS
     Indication: Vitamin D deficiency
     Dosage: UNK
     Route: 065
     Dates: start: 20220822, end: 202209
  31. VITAMIN D [Concomitant]
     Active Substance: VITAMIN D NOS
     Dosage: UNK
     Route: 065
     Dates: start: 202209
  32. CALCIUM [Concomitant]
     Active Substance: CALCIUM
     Indication: Vitamin D deficiency
     Dosage: UNK
     Route: 065
     Dates: start: 202209, end: 202209
  33. CREON [Concomitant]
     Active Substance: PANCRELIPASE AMYLASE\PANCRELIPASE LIPASE\PANCRELIPASE PROTEASE
     Indication: Chronic gastritis
     Dosage: UNK
     Route: 065
     Dates: start: 20220825, end: 202209

REACTIONS (1)
  - Crohn^s disease [Not Recovered/Not Resolved]

NARRATIVE: CASE EVENT DATE: 20220908
